FAERS Safety Report 8190494-0 (Version None)
Quarter: 2012Q1

REPORT INFORMATION
  Report Type: 
  Country: None (occurrence: None)
  Receive Date: 20120307
  Receipt Date: 20120228
  Transmission Date: 20120608
  Serious: Yes (Other)
  Sender: FDA-Public Use
  Company Number: PHHY2012JP009074

PATIENT
  Age: 61 Year
  Sex: Male

DRUGS (8)
  1. CARBOPLATIN [Suspect]
     Dosage: 300 MG, UNK
     Route: 042
     Dates: start: 20120116, end: 20120116
  2. CARBOPLATIN [Suspect]
     Dosage: 450 MG, UNK
     Route: 042
     Dates: start: 20111129, end: 20111129
  3. PACLITAXEL [Suspect]
     Dosage: 300 MG, UNK
     Route: 042
     Dates: start: 20111226, end: 20111226
  4. CARBOPLATIN [Suspect]
     Indication: SMALL CELL LUNG CANCER STAGE UNSPECIFIED
     Dosage: 450 MG, UNK
     Route: 042
     Dates: start: 20111108, end: 20111108
  5. PACLITAXEL [Suspect]
     Indication: SMALL CELL LUNG CANCER STAGE UNSPECIFIED
     Dosage: 300 MG, UNK
     Route: 042
     Dates: start: 20111108, end: 20111108
  6. CARBOPLATIN [Suspect]
     Dosage: 300 MG, UNK
     Route: 042
     Dates: start: 20111226, end: 20111226
  7. PACLITAXEL [Suspect]
     Dosage: 300 MG, UNK
     Route: 042
     Dates: start: 20111129, end: 20111129
  8. PACLITAXEL [Suspect]
     Dosage: 300 MG, UNK
     Route: 042
     Dates: start: 20120116, end: 20120116

REACTIONS (1)
  - PULMONARY THROMBOSIS [None]
